FAERS Safety Report 6416110-3 (Version None)
Quarter: 2009Q4

REPORT INFORMATION
  Report Type: 
  Country: None (occurrence: None)
  Receive Date: 20091027
  Receipt Date: 20091020
  Transmission Date: 20100525
  Serious: Yes (Other)
  Sender: FDA-Public Use
  Company Number: DE-MERCK-0910DEU00015

PATIENT
  Age: 54 Year
  Sex: Male
  Weight: 85 kg

DRUGS (5)
  1. VYTORIN [Suspect]
     Indication: HYPERCHOLESTEROLAEMIA
     Route: 048
     Dates: start: 20040101, end: 20080101
  2. VYTORIN [Suspect]
     Route: 048
     Dates: start: 20080101, end: 20091002
  3. VYTORIN [Suspect]
     Indication: ARTERIOSCLEROSIS
     Route: 048
     Dates: start: 20040101, end: 20080101
  4. VYTORIN [Suspect]
     Route: 048
     Dates: start: 20080101, end: 20091002
  5. ASPIRIN [Concomitant]
     Route: 048

REACTIONS (6)
  - ALANINE AMINOTRANSFERASE INCREASED [None]
  - ASPARTATE AMINOTRANSFERASE INCREASED [None]
  - BLOOD CREATINE PHOSPHOKINASE INCREASED [None]
  - CARDIOVASCULAR DISORDER [None]
  - MOBILITY DECREASED [None]
  - MYALGIA [None]
